FAERS Safety Report 8880713 (Version 2)
Quarter: 2013Q1

REPORT INFORMATION
  Report Type: Spontaneous
  Country: US (occurrence: US)
  Receive Date: 20121101
  Receipt Date: 20130104
  Transmission Date: 20140127
  Serious: Yes (Congenital Anomaly, Other)
  Sender: FDA-Public Use
  Company Number: US-PFIZER INC-2012268111

PATIENT
  Sex: Male

DRUGS (5)
  1. ZOLOFT [Suspect]
     Dosage: UNK
     Route: 064
  2. PRENATAL VITAMINS [Concomitant]
     Dosage: UNK
     Route: 064
  3. LUPRON [Concomitant]
     Dosage: UNK
     Route: 064
  4. PROGESTERONE [Concomitant]
     Dosage: UNK
     Route: 064
  5. PERGONAL [Concomitant]
     Dosage: UNK
     Route: 064

REACTIONS (16)
  - Maternal exposure timing unspecified [Unknown]
  - Spina bifida occulta [Unknown]
  - VACTERL syndrome [Unknown]
  - Talipes [Unknown]
  - Mitral valve incompetence [Unknown]
  - Tracheo-oesophageal fistula [Unknown]
  - Heart disease congenital [Unknown]
  - Congenital hydronephrosis [Unknown]
  - Patent ductus arteriosus [Unknown]
  - Atrial septal defect [Unknown]
  - Cryptorchism [Unknown]
  - Scoliosis [Unknown]
  - Congenital anomaly [Unknown]
  - Pneumonia [Unknown]
  - Developmental delay [Unknown]
  - Premature baby [Unknown]
